FAERS Safety Report 5027562-8 (Version None)
Quarter: 2006Q2

REPORT INFORMATION
  Report Type: 
  Country: None (occurrence: None)
  Receive Date: 20060616
  Receipt Date: 20060608
  Transmission Date: 20061013
  Serious: Yes (Other)
  Sender: FDA-Public Use
  Company Number: PHBS2006BR08774

PATIENT
  Sex: Female

DRUGS (1)
  1. ZADITEN [Suspect]

REACTIONS (4)
  - EYE OEDEMA [None]
  - INTRAOCULAR PRESSURE INCREASED [None]
  - VISION BLURRED [None]
  - VISUAL ACUITY REDUCED [None]
